FAERS Safety Report 24078016 (Version 1)
Quarter: 2024Q3

REPORT INFORMATION
  Report Type: Spontaneous
  Country: GB (occurrence: GB)
  Receive Date: 20240711
  Receipt Date: 20240711
  Transmission Date: 20241016
  Serious: Yes (Other)
  Sender: MSN LABORATORIES
  Company Number: None

PATIENT

DRUGS (1)
  1. ATORVASTATIN [Suspect]
     Active Substance: ATORVASTATIN
     Indication: Product used for unknown indication
     Dosage: 20MG
     Route: 065
     Dates: start: 20240518

REACTIONS (6)
  - Medication error [Unknown]
  - Myalgia [Not Recovered/Not Resolved]
  - Head discomfort [Unknown]
  - Fatigue [Unknown]
  - Nausea [Unknown]
  - Vision blurred [Unknown]

NARRATIVE: CASE EVENT DATE: 20240615
